FAERS Safety Report 6677117-4 (Version None)
Quarter: 2010Q2

REPORT INFORMATION
  Report Type: 
  Country: None (occurrence: None)
  Receive Date: 20100408
  Receipt Date: 20100326
  Transmission Date: 20101027
  Serious: Yes (Other)
  Sender: FDA-Public Use
  Company Number: 008718

PATIENT

DRUGS (1)
  1. PROSTAGLANDIN E1 (PROSTAGLANDIN E1) [Suspect]
     Indication: HEART DISEASE CONGENITAL
     Dosage: (INTRAVENOUS (NOT OTHERWISE SPECIFIED))
     Route: 042

REACTIONS (1)
  - APNOEA [None]
